FAERS Safety Report 7378271-1 (Version None)
Quarter: 2011Q1

REPORT INFORMATION
  Report Type: 
  Country: None (occurrence: None)
  Receive Date: 20110328
  Receipt Date: 20110318
  Transmission Date: 20110831
  Serious: Yes (Hospitalization)
  Sender: FDA-Public Use
  Company Number: FR-ASTRAZENECA-2011SE15643

PATIENT
  Age: 16544 Day
  Sex: Female

DRUGS (11)
  1. TACROLIMUS [Concomitant]
  2. LEVOTHYROX [Concomitant]
  3. NEXIUM [Suspect]
     Indication: OESOPHAGEAL ACHALASIA
     Route: 048
     Dates: start: 20090801
  4. NEXIUM [Suspect]
     Dosage: 5 TO 6 TABLETS PER DAY FOR SEVERAL WEEKS BEFORE HOSPITALIZATION ON 01-JAN-2011
     Route: 048
  5. TAHOR [Concomitant]
  6. TENORMIN [Concomitant]
  7. ARANESP [Concomitant]
  8. NEXIUM [Suspect]
     Route: 048
     Dates: start: 20110108
  9. CELLCEPT [Concomitant]
  10. NEXIUM [Suspect]
     Route: 048
     Dates: start: 20110102, end: 20110107
  11. EUPRESSYL [Concomitant]

REACTIONS (1)
  - ENCEPHALOPATHY [None]
